FAERS Safety Report 8194152-8 (Version None)
Quarter: 2012Q1

REPORT INFORMATION
  Report Type: 
  Country: None (occurrence: None)
  Receive Date: 20120308
  Receipt Date: 20120302
  Transmission Date: 20120608
  Serious: Yes (Death, Hospitalization)
  Sender: FDA-Public Use
  Company Number: US-ACTELION-A-US2011-54052

PATIENT

DRUGS (3)
  1. ADCIRCA [Concomitant]
  2. TRACLEER [Suspect]
     Indication: PULMONARY ARTERIAL HYPERTENSION
     Dosage: UNK
     Route: 048
     Dates: start: 20101020, end: 20111115
  3. COUMADIN [Concomitant]

REACTIONS (3)
  - PULMONARY HYPERTENSIVE CRISIS [None]
  - CARDIAC FAILURE ACUTE [None]
  - DYSPNOEA [None]
